FAERS Safety Report 7926966-0 (Version None)
Quarter: 2011Q4

REPORT INFORMATION
  Report Type: 
  Country: None (occurrence: None)
  Receive Date: 20111118
  Receipt Date: 20111107
  Transmission Date: 20120403
  Serious: Yes (Other)
  Sender: FDA-Public Use
  Company Number: CA-JNJFOC-20111104884

PATIENT
  Sex: Female
  Weight: 106 kg

DRUGS (1)
  1. REMICADE [Suspect]
     Indication: CROHN'S DISEASE
     Dates: start: 20111024

REACTIONS (3)
  - PROCEDURAL SITE REACTION [None]
  - ERYTHEMA [None]
  - POST PROCEDURAL DISCHARGE [None]
